FAERS Safety Report 12109619 (Version 1)
Quarter: 2016Q1

REPORT INFORMATION
  Report Type: Spontaneous
  Country: US (occurrence: None)
  Receive Date: 20160222
  Receipt Date: 20160222
  Transmission Date: 20160526
  Serious: Yes (Other)
  Sender: FDA-Public Use
  Company Number: None

PATIENT
  Age: 23 Year
  Sex: Male
  Weight: 49.9 kg

DRUGS (23)
  1. DESMOPRESSIN 0.1 DF ACTAVIS [Suspect]
     Active Substance: DESMOPRESSIN
     Indication: DIABETES INSIPIDUS
     Route: 048
     Dates: start: 20160130, end: 20160201
  2. SIMETHICONE (DIMETHICONE) [Concomitant]
     Active Substance: DIMETHICONE
  3. METOCLOPRAMIDE. [Concomitant]
     Active Substance: METOCLOPRAMIDE
  4. QUETIAPINE [Concomitant]
     Active Substance: QUETIAPINE
  5. ACETAMINOPHEN. [Concomitant]
     Active Substance: ACETAMINOPHEN
  6. ENOXAPARIN [Concomitant]
     Active Substance: ENOXAPARIN
  7. FUROSEMIDE. [Concomitant]
     Active Substance: FUROSEMIDE
  8. PROPRANOLOL [Concomitant]
     Active Substance: PROPRANOLOL\PROPRANOLOL HYDROCHLORIDE
  9. CEFEPIME [Concomitant]
     Active Substance: CEFEPIME HYDROCHLORIDE
  10. PHYTONADIONE. [Concomitant]
     Active Substance: PHYTONADIONE
  11. LANZOPRAZOLE [Concomitant]
     Active Substance: LANSOPRAZOLE
  12. OXYCODONE HYDROCHLORIDE. [Concomitant]
     Active Substance: OXYCODONE HYDROCHLORIDE
  13. POTASSIUM CHLORIDE. [Concomitant]
     Active Substance: POTASSIUM CHLORIDE
  14. WARFARIN [Concomitant]
     Active Substance: WARFARIN
  15. FENTANYL. [Concomitant]
     Active Substance: FENTANYL
  16. FERROUS SULFATE [Concomitant]
     Active Substance: FERROUS SULFATE\FERROUS SULFATE, DRIED
  17. FOLIC ACID. [Concomitant]
     Active Substance: FOLIC ACID
  18. INSULIN ASPART [Concomitant]
     Active Substance: INSULIN ASPART
  19. LORAZEPAM. [Concomitant]
     Active Substance: LORAZEPAM
  20. AMANTADINE [Concomitant]
     Active Substance: AMANTADINE
  21. NPH INSULIN [Concomitant]
     Active Substance: INSULIN BEEF
  22. VANCOMYCIN [Concomitant]
     Active Substance: VANCOMYCIN
  23. ALBUTEROL NEBULIZER [Concomitant]
     Active Substance: ALBUTEROL

REACTIONS (2)
  - Alanine aminotransferase increased [None]
  - Aspartate aminotransferase increased [None]

NARRATIVE: CASE EVENT DATE: 20160201
